FAERS Safety Report 24436231 (Version 1)
Quarter: 2024Q4

REPORT INFORMATION
  Report Type: Spontaneous
  Country: DE (occurrence: DE)
  Receive Date: 20241015
  Receipt Date: 20241015
  Transmission Date: 20250115
  Serious: Yes (Other)
  Sender: ESPERION THERAPEUTICS
  Company Number: None

PATIENT
  Age: 56 Year
  Sex: Male
  Weight: 88 kg

DRUGS (1)
  1. BEMPEDOIC ACID\EZETIMIBE [Suspect]
     Active Substance: BEMPEDOIC ACID\EZETIMIBE
     Indication: Hypercholesterolaemia
     Dosage: 1 DF, QD
     Route: 048
     Dates: start: 202301, end: 20240820

REACTIONS (5)
  - Cholelithiasis [Recovered/Resolved]
  - Aversion [Recovered/Resolved]
  - Biliary colic [Recovered/Resolved]
  - Fatigue [Recovered/Resolved]
  - Tendon rupture [Unknown]

NARRATIVE: CASE EVENT DATE: 20230501
